FAERS Safety Report 24262566 (Version 2)
Quarter: 2024Q4

REPORT INFORMATION
  Report Type: Report from Study
  Country: NL (occurrence: NL)
  Receive Date: 20240829
  Receipt Date: 20241018
  Transmission Date: 20250115
  Serious: Yes (Other)
  Sender: TEVA
  Company Number: NL-TEVA-VS-3237016

PATIENT
  Age: 42 Year
  Sex: Female

DRUGS (1)
  1. FREMANEZUMAB [Suspect]
     Active Substance: FREMANEZUMAB
     Indication: Migraine without aura
     Route: 058
     Dates: start: 202006, end: 202008

REACTIONS (1)
  - Pericarditis [Unknown]

NARRATIVE: CASE EVENT DATE: 20200801
